FAERS Safety Report 5877964-2 (Version None)
Quarter: 2008Q3

REPORT INFORMATION
  Report Type: 
  Country: None (occurrence: None)
  Receive Date: 20080911
  Receipt Date: 20080901
  Transmission Date: 20090109
  Serious: Yes (Hospitalization, Other)
  Sender: FDA-Public Use
  Company Number: JP-ASTRAZENECA-2008AP07026

PATIENT
  Age: 22 Year
  Sex: Female

DRUGS (5)
  1. SEROQUEL [Suspect]
     Route: 048
  2. DEPAKENE [Suspect]
     Route: 048
  3. LOXONIN [Suspect]
     Route: 048
  4. BENZODIAZPIN DERIVATIVES AND PREPARATIONS [Suspect]
  5. UNSPECIFIED OTC DRUGS [Suspect]
     Route: 048

REACTIONS (4)
  - EXTRASYSTOLES [None]
  - LOSS OF CONSCIOUSNESS [None]
  - OVERDOSE [None]
  - TACHYCARDIA [None]
